FAERS Safety Report 4619407-2 (Version None)
Quarter: 2005Q2

REPORT INFORMATION
  Report Type: 
  Country: None (occurrence: None)
  Receive Date: 20050325
  Receipt Date: 20041011
  Transmission Date: 20051028
  Serious: Yes (Death, Hospitalization)
  Sender: FDA-Public Use
  Company Number: 64886-2002-055

PATIENT
  Age: 13 Year
  Sex: Female

DRUGS (4)
  1. METHOTREXATE [Suspect]
     Dosage: 4 G ONCE IV
     Route: 042
     Dates: start: 20010720, end: 20010720
  2. METHOTREXATE [Suspect]
     Dosage: 4 G ONCE IV
     Route: 042
     Dates: start: 20010720, end: 20010720
  3. VINCRISTINE [Concomitant]
  4. DEXAMETHASONE [Concomitant]

REACTIONS (2)
  - SEPSIS [None]
  - STEVENS-JOHNSON SYNDROME [None]
